FAERS Safety Report 6125349-6 (Version None)
Quarter: 2009Q1

REPORT INFORMATION
  Report Type: 
  Country: None (occurrence: None)
  Receive Date: 20090318
  Receipt Date: 20090302
  Transmission Date: 20090719
  Serious: Yes (Hospitalization)
  Sender: FDA-Public Use
  Company Number: 1000004258

PATIENT
  Age: 77 Year
  Sex: Male

DRUGS (12)
  1. NEBIVOLOL HCL [Suspect]
     Indication: DRUG USE FOR UNKNOWN INDICATION
     Dosage: 5 MG (5 MG, 1 IN 1 D), ORAL
     Route: 048
     Dates: start: 20070910, end: 20080101
  2. VASTAREL [Concomitant]
  3. TADENAN [Concomitant]
  4. PLAVIX [Concomitant]
  5. ASPEGIC 1000 [Concomitant]
  6. LEXOMIL (TABLETS) [Concomitant]
  7. PROPYLTHIOURACIL (PROPYLTHIOURACIL) (PROYPLYTHOURACIL) [Concomitant]
  8. LEVOTHYROXINE SODIUM [Concomitant]
  9. CRESTOR [Concomitant]
  10. BIPRETERAX [Concomitant]
  11. NASONEX [Concomitant]
  12. ALLERGODIL [Concomitant]

REACTIONS (7)
  - ACUTE CORONARY SYNDROME [None]
  - ARTERIOSCLEROSIS CORONARY ARTERY [None]
  - BLOOD PRESSURE INCREASED [None]
  - CYTOLYTIC HEPATITIS [None]
  - NON-OBSTRUCTIVE CARDIOMYOPATHY [None]
  - SINUS BRADYCARDIA [None]
  - THERAPY REGIMEN CHANGED [None]
